FAERS Safety Report 8193169-7 (Version None)
Quarter: 2012Q1

REPORT INFORMATION
  Report Type: 
  Country: None (occurrence: None)
  Receive Date: 20120308
  Receipt Date: 20120229
  Transmission Date: 20120608
  Serious: Yes (Other)
  Sender: FDA-Public Use
  Company Number: US-CELGENEUS-163-21880-12030044

PATIENT
  Sex: Male
  Weight: 111.23 kg

DRUGS (3)
  1. VELCADE [Concomitant]
     Route: 065
  2. DECADRON [Concomitant]
     Route: 065
  3. REVLIMID [Suspect]
     Indication: MULTIPLE MYELOMA
     Route: 048
     Dates: start: 20111007

REACTIONS (1)
  - PREGNANCY OF PARTNER [None]
